FAERS Safety Report 10201162 (Version 1)
Quarter: 2014Q2

REPORT INFORMATION
  Report Type: Spontaneous
  Country: US (occurrence: US)
  Receive Date: 20140528
  Receipt Date: 20140528
  Transmission Date: 20141212
  Serious: No
  Sender: FDA-Public Use
  Company Number: US-MYLANLABS-2014S1004037

PATIENT
  Age: 67 Year
  Sex: Female
  Weight: 61.24 kg

DRUGS (1)
  1. MONTELUKAST SODIUM TABLETS [Suspect]
     Indication: SEASONAL ALLERGY
     Dates: start: 20131202

REACTIONS (1)
  - Abdominal distension [Not Recovered/Not Resolved]
